FAERS Safety Report 5417841-4 (Version None)
Quarter: 2007Q3

REPORT INFORMATION
  Report Type: 
  Country: None (occurrence: None)
  Receive Date: 20070815
  Receipt Date: 20070801
  Transmission Date: 20080115
  Serious: Yes (Hospitalization)
  Sender: FDA-Public Use
  Company Number: 163-C5013-06050260

PATIENT
  Age: 54 Year
  Sex: Female
  Weight: 78.9259 kg

DRUGS (4)
  1. CC-5013 (LENALIDOMIDE) (CAPSULES) [Suspect]
     Indication: MULTIPLE MYELOMA
     Dosage: 10 MG, QD, ON DAYS 1-21, ORAL
     Route: 048
     Dates: start: 20060314
  2. VINCRISTINE [Suspect]
     Indication: MULTIPLE MYELOMA
     Dosage: 2 MG, D1, INTRAVENOUS
     Route: 042
     Dates: start: 20060314
  3. DEXAMETHASONE TAB [Suspect]
     Indication: MULTIPLE MYELOMA
     Dosage: 40 MG, D1-4, ORAL
     Route: 048
     Dates: start: 20060314
  4. DOXIL [Suspect]
     Indication: MULTIPLE MYELOMA
     Dosage: 40 MG/M2, D1, INTRAVENOUS
     Route: 042
     Dates: start: 20060314

REACTIONS (4)
  - FAILURE TO THRIVE [None]
  - NAUSEA [None]
  - VOMITING [None]
  - WEIGHT DECREASED [None]
